FAERS Safety Report 4840372-7 (Version None)
Quarter: 2005Q4

REPORT INFORMATION
  Report Type: 
  Country: None (occurrence: None)
  Receive Date: 20051025
  Receipt Date: 20050624
  Transmission Date: 20060501
  Serious: Yes (Hospitalization)
  Sender: FDA-Public Use
  Company Number: 2005-BP-10821BP

PATIENT
  Sex: Male

DRUGS (5)
  1. COMBIVENT [Suspect]
     Indication: CHRONIC OBSTRUCTIVE PULMONARY DISEASE
     Dosage: 4X/DAY,IH
     Dates: start: 19970601, end: 20050420
  2. ALBUTEROL [Concomitant]
  3. AEROBID [Concomitant]
  4. ASPIRIN [Concomitant]
  5. LISINOPRIL [Concomitant]

REACTIONS (2)
  - CHRONIC OBSTRUCTIVE PULMONARY DISEASE [None]
  - DYSPNOEA EXACERBATED [None]
